FAERS Safety Report 17734485 (Version 2)
Quarter: 2020Q2

REPORT INFORMATION
  Report Type: Report from Study
  Country: US (occurrence: US)
  Receive Date: 20200501
  Receipt Date: 20200508
  Transmission Date: 20200714
  Serious: Yes (Other)
  Sender: FDA-Public Use
  Company Number: US-PFIZER INC-2020127999

PATIENT
  Age: 56 Year
  Sex: Female

DRUGS (1)
  1. SUTENT [Suspect]
     Active Substance: SUNITINIB MALATE
     Indication: RENAL CELL CARCINOMA
     Dosage: 50 MG, CYCLIC (ONCE DAILY FOR 4 WEEKS ON, AND 2 WEEKS OFF)
     Route: 048
     Dates: start: 20200317

REACTIONS (16)
  - Decreased appetite [Recovering/Resolving]
  - Nausea [Not Recovered/Not Resolved]
  - Fatigue [Not Recovered/Not Resolved]
  - Haemorrhoids [Not Recovered/Not Resolved]
  - Thyroid function test abnormal [Unknown]
  - Muscle spasms [Recovering/Resolving]
  - Faeces soft [Recovering/Resolving]
  - Flank pain [Unknown]
  - Taste disorder [Not Recovered/Not Resolved]
  - Abdominal pain [Recovering/Resolving]
  - Haematochezia [Unknown]
  - Hair colour changes [Unknown]
  - Skin exfoliation [Recovered/Resolved]
  - Glossodynia [Recovered/Resolved]
  - Erythema [Recovered/Resolved]
  - Product dose omission [Unknown]

NARRATIVE: CASE EVENT DATE: 2020
